FAERS Safety Report 8973151 (Version 1)
Quarter: 2012Q4

REPORT INFORMATION
  Report Type: 
  Country: US (occurrence: US)
  Receive Date: 20121219
  Receipt Date: 20121219
  Transmission Date: 20130627
  Serious: Yes (Hospitalization)
  Sender: FDA-Public Use
  Company Number: US-MYLANLABS-2012S1025392

PATIENT
  Age: 65 Year
  Sex: Female

DRUGS (2)
  1. DONEPEZIL [Suspect]
     Indication: DEMENTIA ALZHEIMER^S TYPE
     Dosage: 5 mg/day
     Route: 065
  2. CLOPIDOGREL [Concomitant]
     Route: 065

REACTIONS (1)
  - Mania [Not Recovered/Not Resolved]
